FAERS Safety Report 6285309-1 (Version None)
Quarter: 2009Q3

REPORT INFORMATION
  Report Type: 
  Country: None (occurrence: None)
  Receive Date: 20090727
  Receipt Date: 20090617
  Transmission Date: 20100115
  Serious: No
  Sender: FDA-Public Use
  Company Number: US-TYCO HEALTHCARE/MALLINCKRODT-T200901236

PATIENT
  Age: 50 Year
  Sex: Male

DRUGS (3)
  1. LORCET-HD [Suspect]
  2. AMBIEN [Suspect]
     Indication: INSOMNIA
     Dosage: 10 MG, HS
     Route: 048
  3. FENTANYL-100 [Suspect]
     Route: 062

REACTIONS (3)
  - DRUG INTERACTION [None]
  - SLEEP DISORDER [None]
  - SOMNOLENCE [None]
